FAERS Safety Report 6898284-3 (Version None)
Quarter: 2010Q3

REPORT INFORMATION
  Report Type: 
  Country: None (occurrence: None)
  Receive Date: 20100802
  Receipt Date: 20070928
  Transmission Date: 20110219
  Serious: No
  Sender: FDA-Public Use
  Company Number: US-PFIZER INC-2007082419

PATIENT
  Sex: Female

DRUGS (2)
  1. LYRICA [Suspect]
     Indication: FIBROMYALGIA
     Dates: start: 20070901
  2. FLEXERIL [Concomitant]

REACTIONS (4)
  - HEADACHE [None]
  - MIGRAINE [None]
  - RESTLESSNESS [None]
  - VOMITING [None]
